FAERS Safety Report 5928988-8 (Version None)
Quarter: 2008Q4

REPORT INFORMATION
  Report Type: 
  Country: None (occurrence: None)
  Receive Date: 20081024
  Receipt Date: 20081017
  Transmission Date: 20090506
  Serious: Yes (Hospitalization, Other)
  Sender: FDA-Public Use
  Company Number: US-KINGPHARMUSA00001-K200801204

PATIENT

DRUGS (5)
  1. ALTACE [Suspect]
     Dosage: 5 OR 10 MG, QD
     Route: 048
     Dates: start: 20051001, end: 20080801
  2. ALTACE [Suspect]
  3. AMLOZEK                            /00972401/ [Concomitant]
     Route: 048
     Dates: start: 20050101
  4. BETALOC                            /00376902/ [Concomitant]
     Route: 048
     Dates: start: 20050101
  5. SIMVACARD [Concomitant]
     Route: 048
     Dates: start: 20050101

REACTIONS (5)
  - ANAEMIA [None]
  - CARDIOVASCULAR INSUFFICIENCY [None]
  - ERYTHEMA [None]
  - OEDEMA PERIPHERAL [None]
  - THROMBOCYTOPENIA [None]
